FAERS Safety Report 7303512-6 (Version None)
Quarter: 2011Q1

REPORT INFORMATION
  Report Type: 
  Country: None (occurrence: None)
  Receive Date: 20110221
  Receipt Date: 20110216
  Transmission Date: 20110831
  Serious: Yes (Death)
  Sender: FDA-Public Use
  Company Number: PHHY2010BR56145

PATIENT
  Sex: Male

DRUGS (3)
  1. FORASEQ [Suspect]
     Indication: EMPHYSEMA
  2. FORASEQ [Suspect]
     Indication: LUNG NEOPLASM MALIGNANT
     Dosage: 1 DF, BID
  3. MORPHINE [Concomitant]

REACTIONS (1)
  - CARDIAC FAILURE [None]
